FAERS Safety Report 21504280 (Version 1)
Quarter: 2022Q4

REPORT INFORMATION
  Report Type: Spontaneous
  Country: US (occurrence: US)
  Receive Date: 20221025
  Receipt Date: 20221025
  Transmission Date: 20230112
  Serious: No
  Sender: FDA-Public Use
  Company Number: US-MYLANLABS-2022M1112939

PATIENT
  Sex: Male
  Weight: 77.11 kg

DRUGS (5)
  1. PREGABALIN [Suspect]
     Active Substance: PREGABALIN
     Indication: Trigeminal neuralgia
     Dosage: 100 MILLIGRAM, TID
     Route: 065
     Dates: start: 202206
  2. METOPROLOL [Concomitant]
     Active Substance: METOPROLOL
     Indication: Cardiovascular disorder
     Dosage: 25 MILLIGRAM, QD, (OTHER MEDICINES METOPROLOL: STARTED ABOUT 5 YEARS AGO)
     Route: 048
  3. OMEPRAZOLE [Concomitant]
     Active Substance: OMEPRAZOLE
     Indication: Gastrooesophageal reflux disease
     Dosage: 20 MILLIGRAM, QD, ( OTHER MEDICINES OMEPRAZOLE: STARTED ABOUT 30 YEARS AGO)
     Route: 048
  4. DOXAZOSIN [Concomitant]
     Active Substance: DOXAZOSIN MESYLATE
     Indication: Urinary tract disorder
     Dosage: 1 MILLIGRAM, QD, (OTHER MEDICINES DOXAZOSIN: STARTED AROUND 6 YEARS AGO)
     Route: 048
  5. XARELTO [Concomitant]
     Active Substance: RIVAROXABAN
     Indication: Cardiovascular disorder
     Dosage: 20 MILLIGRAM, QD, (OTHER MEDICINES XARELTO: STARTED ABOUT 3 YEARS AG)
     Route: 048

REACTIONS (1)
  - Constipation [Not Recovered/Not Resolved]
